FAERS Safety Report 10506158 (Version 1)
Quarter: 2014Q4

REPORT INFORMATION
  Report Type: Spontaneous
  Country: DE (occurrence: DE)
  Receive Date: 20141009
  Receipt Date: 20141009
  Transmission Date: 20150528
  Serious: Yes (Other)
  Sender: FDA-Public Use
  Company Number: DE-JNJFOC-20141003209

PATIENT
  Age: 67 Year
  Sex: Male

DRUGS (5)
  1. TILIDINE HYDROCHLORIDE [Suspect]
     Active Substance: TILIDINE HYDROCHLORIDE
     Indication: SPINAL COLUMN STENOSIS
     Route: 065
  2. IBUPROFEN. [Suspect]
     Active Substance: IBUPROFEN
     Indication: SPINAL COLUMN STENOSIS
     Route: 065
  3. NOVAMINSULFON [Suspect]
     Active Substance: METAMIZOLE
     Indication: SPINAL COLUMN STENOSIS
     Route: 065
  4. TAMSULOSIN [Concomitant]
     Active Substance: TAMSULOSIN
     Indication: BENIGN PROSTATIC HYPERPLASIA
     Route: 065
  5. DICLOFENAC [Suspect]
     Active Substance: DICLOFENAC
     Indication: SPINAL COLUMN STENOSIS
     Route: 065

REACTIONS (2)
  - Pancreatitis chronic [Recovered/Resolved]
  - Product use issue [Unknown]

NARRATIVE: CASE EVENT DATE: 2012
